FAERS Safety Report 8179900-5 (Version None)
Quarter: 2012Q1

REPORT INFORMATION
  Report Type: 
  Country: None (occurrence: None)
  Receive Date: 20120302
  Receipt Date: 20120227
  Transmission Date: 20120608
  Serious: Yes (Hospitalization)
  Sender: FDA-Public Use
  Company Number: JP-SANOFI-AVENTIS-2012SA006045

PATIENT
  Age: 78 Year
  Sex: Female
  Weight: 57.6 kg

DRUGS (9)
  1. TRAZODONE HYDROCHLORIDE [Concomitant]
     Indication: DEMENTIA
     Route: 048
     Dates: start: 20120117
  2. GRAMALIL [Concomitant]
     Indication: DEMENTIA
     Route: 048
     Dates: start: 20111109
  3. CARVEDILOL [Concomitant]
     Indication: HYPERTENSION
     Route: 048
     Dates: start: 20100117
  4. TRICHLORMETHIAZIDE [Concomitant]
     Indication: HYPERTENSION
     Route: 048
     Dates: start: 20100117
  5. PLAVIX [Suspect]
     Route: 048
     Dates: start: 20100117, end: 20120119
  6. SEROQUEL [Suspect]
     Indication: DEMENTIA
     Route: 048
     Dates: start: 20120117
  7. SIGMART [Concomitant]
     Route: 048
     Dates: start: 20100117
  8. ASPIRIN [Concomitant]
     Route: 048
     Dates: start: 20100117
  9. LASIX [Suspect]
     Route: 048
     Dates: start: 20100117

REACTIONS (9)
  - ASPARTATE AMINOTRANSFERASE INCREASED [None]
  - ASTHENIA [None]
  - RHABDOMYOLYSIS [None]
  - BLOOD LACTATE DEHYDROGENASE INCREASED [None]
  - BLOOD CREATINE PHOSPHOKINASE INCREASED [None]
  - MALAISE [None]
  - IRRITABILITY [None]
  - ALANINE AMINOTRANSFERASE INCREASED [None]
  - RESTLESSNESS [None]
